FAERS Safety Report 9093135 (Version 1)
Quarter: 2013Q1

REPORT INFORMATION
  Report Type: Spontaneous
  Country: US (occurrence: None)
  Receive Date: 20130213
  Receipt Date: 20130213
  Transmission Date: 20140127
  Serious: Yes (Other)
  Sender: FDA-Public Use
  Company Number: None

PATIENT
  Age: 47 Year
  Sex: Female
  Weight: 62.14 kg

DRUGS (2)
  1. ESCITALOPRAM [Suspect]
     Indication: SEROTONIN SYNDROME
     Route: 048
     Dates: start: 20121202, end: 20130209
  2. ESCITALOPRAM [Concomitant]

REACTIONS (7)
  - Weight increased [None]
  - Anxiety [None]
  - Headache [None]
  - Heart rate irregular [None]
  - Asthma [None]
  - Irritability [None]
  - Product substitution issue [None]
